FAERS Safety Report 17860250 (Version 1)
Quarter: 2020Q2

REPORT INFORMATION
  Report Type: Spontaneous
  Country: KR (occurrence: KR)
  Receive Date: 20200604
  Receipt Date: 20200604
  Transmission Date: 20200714
  Serious: Yes (Hospitalization)
  Sender: FDA-Public Use
  Company Number: KR-VALIDUS PHARMACEUTICALS LLC-KR-2020VAL000464

PATIENT

DRUGS (2)
  1. INSULIN [Concomitant]
     Active Substance: INSULIN NOS
     Indication: PRODUCT USED FOR UNKNOWN INDICATION
     Dosage: UNK
  2. CEFOTAXIME SODIUM [Suspect]
     Active Substance: CEFOTAXIME SODIUM
     Indication: URINARY TRACT INFECTION
     Dosage: UNK, INTRAVENOUS
     Route: 042

REACTIONS (2)
  - Abdominal pain [Recovered/Resolved]
  - Drug resistance [Recovered/Resolved]
